FAERS Safety Report 19416411 (Version 1)
Quarter: 2021Q2

REPORT INFORMATION
  Report Type: Spontaneous
  Country: US (occurrence: US)
  Receive Date: 20210614
  Receipt Date: 20210614
  Transmission Date: 20210717
  Serious: Yes (Hospitalization, Other)
  Sender: FDA-Public Use
  Company Number: US-ANIPHARMA-2021-US-011207

PATIENT
  Age: 15 Year
  Sex: Female

DRUGS (2)
  1. TOPIRAMATE. [Suspect]
     Active Substance: TOPIRAMATE
     Indication: INTRACRANIAL PRESSURE INCREASED
     Dosage: 50 MG AT BEDTIME
  2. FUROSEMIDE (NON?SPECIFIC) [Suspect]
     Active Substance: FUROSEMIDE
     Indication: INTRACRANIAL PRESSURE INCREASED
     Dosage: 40 MG EVERY OTHER DAY

REACTIONS (1)
  - Meningitis aseptic [Recovered/Resolved]
